FAERS Safety Report 11777156 (Version 4)
Quarter: 2016Q2

REPORT INFORMATION
  Report Type: Spontaneous
  Country: US (occurrence: US)
  Receive Date: 20151125
  Receipt Date: 20160627
  Transmission Date: 20160815
  Serious: No
  Sender: FDA-Public Use
  Company Number: US-PFIZER INC-2015402141

PATIENT
  Age: 61 Year
  Sex: Female

DRUGS (1)
  1. PREMARIN [Suspect]
     Active Substance: ESTROGENS, CONJUGATED
     Dosage: ^625^, ALTERNATE DAY
     Dates: end: 201605

REACTIONS (3)
  - Sleep disorder [Unknown]
  - Intentional product misuse [Unknown]
  - Night sweats [Unknown]
